FAERS Safety Report 12478220 (Version 1)
Quarter: 2016Q2

REPORT INFORMATION
  Report Type: Spontaneous
  Country: US (occurrence: US)
  Receive Date: 20160617
  Receipt Date: 20160617
  Transmission Date: 20160815
  Serious: No
  Sender: FDA-Public Use
  Company Number: US-PFIZER INC-2016284350

PATIENT
  Age: 45 Year
  Sex: Female
  Weight: 113 kg

DRUGS (1)
  1. SOMAVERT [Suspect]
     Active Substance: PEGVISOMANT
     Indication: ACROMEGALY
     Dosage: 10 MG, UNK (FOR 2 WEEKS)

REACTIONS (8)
  - Headache [Unknown]
  - Gait disturbance [Unknown]
  - Pyrexia [Unknown]
  - Back pain [Unknown]
  - Malaise [Recovering/Resolving]
  - Pain [Unknown]
  - Abdominal pain [Unknown]
  - Influenza like illness [Unknown]

NARRATIVE: CASE EVENT DATE: 2016
